FAERS Safety Report 25236470 (Version 2)
Quarter: 2025Q2

REPORT INFORMATION
  Report Type: Spontaneous
  Country: CA (occurrence: CA)
  Receive Date: 20250424
  Receipt Date: 20250506
  Transmission Date: 20250716
  Serious: Yes (Hospitalization, Other)
  Sender: MYLAN
  Company Number: CA-MYLANLABS-2025M1033881

PATIENT
  Age: 17 Year
  Sex: Female

DRUGS (23)
  1. PREGABALIN [Suspect]
     Active Substance: PREGABALIN
     Indication: Injection site pain
  2. LIDOCAINE [Suspect]
     Active Substance: LIDOCAINE
     Indication: Injection site pain
  3. TACROLIMUS [Suspect]
     Active Substance: TACROLIMUS
     Indication: Type III immune complex mediated reaction
  4. NAPROXEN [Suspect]
     Active Substance: NAPROXEN
     Indication: Injection site pain
  5. DICLOFENAC [Suspect]
     Active Substance: DICLOFENAC
     Indication: Injection site pain
  6. HYDROXYCHLOROQUINE [Suspect]
     Active Substance: HYDROXYCHLOROQUINE
     Indication: Type III immune complex mediated reaction
  7. COLCHICINE [Suspect]
     Active Substance: COLCHICINE
     Indication: Type III immune complex mediated reaction
  8. EMLA [Suspect]
     Active Substance: LIDOCAINE\PRILOCAINE
     Indication: Injection site pain
  9. INSULIN NOS [Suspect]
     Active Substance: INSULIN NOS
     Indication: Type 1 diabetes mellitus
  10. KETAMINE [Suspect]
     Active Substance: KETAMINE
     Indication: Injection site pain
  11. METHOTREXATE SODIUM [Suspect]
     Active Substance: METHOTREXATE SODIUM
     Indication: Type III immune complex mediated reaction
  12. DULOXETINE [Suspect]
     Active Substance: DULOXETINE
     Indication: Injection site pain
  13. INSULIN NOS [Concomitant]
     Active Substance: INSULIN NOS
     Indication: Type 1 diabetes mellitus
  14. INSULIN NOS [Concomitant]
     Active Substance: INSULIN NOS
  15. INSULIN ASPART [Concomitant]
     Active Substance: INSULIN ASPART
     Indication: Type 1 diabetes mellitus
  16. INSULIN DEGLUDEC [Concomitant]
     Active Substance: INSULIN DEGLUDEC
     Indication: Type 1 diabetes mellitus
  17. INSULIN GLARGINE [Concomitant]
     Active Substance: INSULIN GLARGINE
     Indication: Type 1 diabetes mellitus
  18. INSULIN GLULISINE [Concomitant]
     Active Substance: INSULIN GLULISINE
     Indication: Type 1 diabetes mellitus
  19. INSULIN LISPRO [Concomitant]
     Active Substance: INSULIN LISPRO
     Indication: Type 1 diabetes mellitus
  20. COLCHICINE [Concomitant]
     Active Substance: COLCHICINE
     Indication: Type III immune complex mediated reaction
  21. HYDROXYCHLOROQUINE [Concomitant]
     Active Substance: HYDROXYCHLOROQUINE
     Indication: Type III immune complex mediated reaction
  22. METHOTREXATE [Concomitant]
     Active Substance: METHOTREXATE
     Indication: Type III immune complex mediated reaction
  23. TACROLIMUS [Concomitant]
     Active Substance: TACROLIMUS
     Indication: Type III immune complex mediated reaction

REACTIONS (5)
  - Medical device site abscess [Unknown]
  - Medical device site cellulitis [Unknown]
  - Off label use [Unknown]
  - Drug ineffective [Unknown]
  - Therapy partial responder [Unknown]
